FAERS Safety Report 12861102 (Version 2)
Quarter: 2016Q4

REPORT INFORMATION
  Report Type: Report from Study
  Country: DE (occurrence: DE)
  Receive Date: 20161019
  Receipt Date: 20161123
  Transmission Date: 20170207
  Serious: Yes (Other)
  Sender: FDA-Public Use
  Company Number: PHHY2016DE043997

PATIENT
  Age: 54 Year
  Sex: Female
  Weight: 66 kg

DRUGS (2)
  1. COSENTYX [Suspect]
     Active Substance: SECUKINUMAB
     Dosage: 300 MG, EVERY 6 WEEKS
     Route: 058
     Dates: start: 20161006
  2. COSENTYX [Suspect]
     Active Substance: SECUKINUMAB
     Indication: PSORIASIS
     Dosage: 300 MG, EVERY 6 WEEKS
     Route: 058
     Dates: start: 20160105

REACTIONS (20)
  - Dry mouth [Not Recovered/Not Resolved]
  - Ear infection [Not Recovered/Not Resolved]
  - Oral candidiasis [Recovered/Resolved]
  - Ocular hyperaemia [Not Recovered/Not Resolved]
  - Mucosal inflammation [Recovered/Resolved]
  - Scar pain [Not Recovered/Not Resolved]
  - Ear pain [Not Recovered/Not Resolved]
  - Sinusitis [Recovered/Resolved]
  - Eye discharge [Recovering/Resolving]
  - Nasopharyngitis [Not Recovered/Not Resolved]
  - Nasal congestion [Recovered/Resolved]
  - Eye haemorrhage [Recovering/Resolving]
  - Mucosal infection [Not Recovered/Not Resolved]
  - Mucosal dryness [Not Recovered/Not Resolved]
  - Musculoskeletal discomfort [Unknown]
  - Off label use [Unknown]
  - Oral pustule [Recovered/Resolved]
  - Rhinitis [Not Recovered/Not Resolved]
  - Mucous membrane disorder [Recovered/Resolved]
  - Otorrhoea [Not Recovered/Not Resolved]

NARRATIVE: CASE EVENT DATE: 20160404
